FAERS Safety Report 7080306-0 (Version None)
Quarter: 2010Q4

REPORT INFORMATION
  Report Type: 
  Country: None (occurrence: None)
  Receive Date: 20101103
  Receipt Date: 20101020
  Transmission Date: 20110411
  Serious: Yes (Other)
  Sender: FDA-Public Use
  Company Number: DE-RANBAXY-2010RR-39127

PATIENT

DRUGS (11)
  1. CEFUROXIME [Suspect]
     Dosage: 1 TABLET
  2. CEFUROXIME [Suspect]
     Dosage: 0.5 DF, UNK
  3. VOLTAREN [Concomitant]
     Indication: RHEUMATOID ARTHRITIS
     Dosage: 600 MG, QD
  4. CORTISONE [Concomitant]
     Indication: RHEUMATOID ARTHRITIS
     Dosage: 5 MG, QD
  5. LISIHEXAL [Concomitant]
     Dosage: 5 MG, BID
  6. RESTEX TABLETS [Concomitant]
     Dosage: 125 MG, QD
  7. RESTEX PROLONGED RELEASE TABLETS [Concomitant]
     Dosage: 125 MG, QD
  8. LITHIUM [Concomitant]
     Dosage: 250 MG, QD
  9. SEROQUEL [Concomitant]
     Dosage: 2.5 MG, BID
  10. ACTOREL [Concomitant]
     Dosage: UNK
  11. METHOTREXATE AND FOLIC ACID [Concomitant]
     Dosage: 7.5 MG, 1/WEEK

REACTIONS (3)
  - APHASIA [None]
  - CONFUSIONAL STATE [None]
  - DIZZINESS [None]
